FAERS Safety Report 19190552 (Version 1)
Quarter: 2021Q2

REPORT INFORMATION
  Report Type: Spontaneous
  Country: US (occurrence: US)
  Receive Date: 20210428
  Receipt Date: 20210428
  Transmission Date: 20210717
  Serious: No
  Sender: FDA-Public Use
  Company Number: US-BEH-2021130717

PATIENT
  Sex: Female

DRUGS (24)
  1. HIZENTRA [Suspect]
     Active Substance: HUMAN IMMUNOGLOBULIN G
     Dosage: UNK
     Route: 058
     Dates: start: 20210311, end: 20210311
  2. PERCOCET [Concomitant]
     Active Substance: ACETAMINOPHEN\OXYCODONE HYDROCHLORIDE
  3. BUDESONIDE. [Concomitant]
     Active Substance: BUDESONIDE
  4. EPINEPHRINE. [Concomitant]
     Active Substance: EPINEPHRINE
  5. FUROSEMIDE. [Concomitant]
     Active Substance: FUROSEMIDE
  6. HIZENTRA [Suspect]
     Active Substance: HUMAN IMMUNOGLOBULIN G
     Dosage: UNK
     Route: 058
     Dates: start: 20210404, end: 20210404
  7. OLOPATADINE HCL [Concomitant]
     Active Substance: OLOPATADINE HYDROCHLORIDE
  8. HIZENTRA [Suspect]
     Active Substance: HUMAN IMMUNOGLOBULIN G
     Dosage: UNK
     Route: 058
     Dates: start: 20210327, end: 20210327
  9. AUGMENTIN [Concomitant]
     Active Substance: AMOXICILLIN\CLAVULANATE POTASSIUM
  10. BIOTIN [Concomitant]
     Active Substance: BIOTIN
  11. ESTRACE [Concomitant]
     Active Substance: ESTRADIOL
  12. FLONASE [Concomitant]
     Active Substance: FLUTICASONE PROPIONATE
  13. DOXYCYCLINE HYCLATE. [Concomitant]
     Active Substance: DOXYCYCLINE HYCLATE
     Dosage: 100 MILLIGRAM
  14. HIZENTRA [Suspect]
     Active Substance: HUMAN IMMUNOGLOBULIN G
     Indication: IMMUNE SYSTEM DISORDER
     Dosage: 16 GRAM, QW
     Route: 058
  15. VENTOLIN HFA [Concomitant]
     Active Substance: ALBUTEROL SULFATE
  16. EPIPEN [Concomitant]
     Active Substance: EPINEPHRINE
  17. CELEBREX [Concomitant]
     Active Substance: CELECOXIB
  18. HIZENTRA [Suspect]
     Active Substance: HUMAN IMMUNOGLOBULIN G
     Dosage: UNK
     Route: 058
     Dates: start: 20210320, end: 20210320
  19. ADVAIR HFA [Concomitant]
     Active Substance: FLUTICASONE PROPIONATE\SALMETEROL XINAFOATE
  20. ALBUTEROL SULFATE. [Concomitant]
     Active Substance: ALBUTEROL SULFATE
  21. CLARITIN [Concomitant]
     Active Substance: LORATADINE
  22. HYDROCODONE/ACETAMINOPHEN [Concomitant]
     Active Substance: ACETAMINOPHEN\HYDROCODONE
  23. SPIRIVA [Concomitant]
     Active Substance: TIOTROPIUM BROMIDE MONOHYDRATE
  24. MACROBID [CLARITHROMYCIN] [Concomitant]
     Active Substance: CLARITHROMYCIN
     Dosage: 100 MILLIGRAM

REACTIONS (5)
  - Recalled product administered [Recovered/Resolved]
  - Off label use [Unknown]
  - Injection site swelling [Recovered/Resolved]
  - Injection site erythema [Recovered/Resolved]
  - No adverse event [Unknown]
